FAERS Safety Report 8616487-4 (Version None)
Quarter: 2012Q3

REPORT INFORMATION
  Report Type: 
  Country: None (occurrence: None)
  Receive Date: 20120823
  Receipt Date: 20120815
  Transmission Date: 20120928
  Serious: Yes (Hospitalization)
  Sender: FDA-Public Use
  Company Number: US-JNJFOC-20111011597

PATIENT
  Sex: Male
  Weight: 75.5 kg

DRUGS (5)
  1. INFLIXIMAB, RECOMBINANT [Suspect]
     Indication: CROHN'S DISEASE
     Route: 042
     Dates: start: 20110916
  2. ANTIBIOTICS [Concomitant]
     Indication: INFLAMMATORY BOWEL DISEASE
  3. PRILOSEC [Concomitant]
  4. INFLIXIMAB, RECOMBINANT [Suspect]
     Route: 042
     Dates: start: 20110805
  5. PREDNISONE TAB [Concomitant]

REACTIONS (3)
  - CROHN'S DISEASE [None]
  - VENOUS THROMBOSIS LIMB [None]
  - DEEP VEIN THROMBOSIS [None]
